FAERS Safety Report 8945916 (Version 1)
Quarter: 2012Q4

REPORT INFORMATION
  Report Type: 
  Country: CA (occurrence: CA)
  Receive Date: 20121205
  Receipt Date: 20121205
  Transmission Date: 20130627
  Serious: Yes (Hospitalization)
  Sender: FDA-Public Use
  Company Number: CA-B.I. PHARMACEUTICALS,INC./RIDGEFIELD-2012-CN-02449CN

PATIENT
  Age: 87 Year
  Sex: Female
  Weight: 70 kg

DRUGS (6)
  1. PRADAX [Suspect]
     Dosage: 220 mg
     Route: 048
  2. NAPROXEN [Suspect]
     Dosage: 500 mg
     Route: 048
  3. CALCIUM + VITAMIN D [Concomitant]
  4. DILTIAZEM CD [Concomitant]
  5. NITROGLYCERIN [Concomitant]
  6. PANTOPRAZOLE [Concomitant]

REACTIONS (4)
  - Angina pectoris [Unknown]
  - Gastric ulcer [Unknown]
  - Iron deficiency anaemia [Unknown]
  - Upper gastrointestinal haemorrhage [Unknown]
